FAERS Safety Report 7203346-7 (Version None)
Quarter: 2010Q4

REPORT INFORMATION
  Report Type: 
  Country: None (occurrence: None)
  Receive Date: 20101215
  Receipt Date: 20101206
  Transmission Date: 20110411
  Serious: Yes (Other)
  Sender: FDA-Public Use
  Company Number: GER/UKI/10/0015940

PATIENT
  Age: 64 Year
  Sex: Female

DRUGS (2)
  1. CETIRIZINE HCL [Suspect]
     Indication: PRODUCT USED FOR UNKNOWN INDICATION
     Dosage: 10 MG, 1 IN 1 D, ORAL
     Route: 048
     Dates: start: 20070101
  2. BYETTA [Concomitant]

REACTIONS (9)
  - AUTOIMMUNE DISORDER [None]
  - BLADDER PROLAPSE [None]
  - CANDIDIASIS [None]
  - DEEP VEIN THROMBOSIS [None]
  - DRUG DEPENDENCE [None]
  - HEART RATE INCREASED [None]
  - TYPE 2 DIABETES MELLITUS [None]
  - URTICARIA [None]
  - VULVOVAGINAL DISCOMFORT [None]
